FAERS Safety Report 8135514-4 (Version None)
Quarter: 2012Q1

REPORT INFORMATION
  Report Type: 
  Country: None (occurrence: None)
  Receive Date: 20120214
  Receipt Date: 20120207
  Transmission Date: 20120608
  Serious: Yes (Other)
  Sender: FDA-Public Use
  Company Number: US-SHIRE-ALL1-2012-00283

PATIENT
  Sex: Male

DRUGS (1)
  1. VPRIV [Suspect]
     Indication: GAUCHER'S DISEASE
     Dosage: 10 VIALS, MONTHLY
     Route: 041
     Dates: start: 20100527

REACTIONS (10)
  - CYTOMEGALOVIRUS TEST POSITIVE [None]
  - LIVER FUNCTION TEST ABNORMAL [None]
  - PYREXIA [None]
  - CYTOMEGALOVIRUS INFECTION [None]
  - CHILLS [None]
  - HYPERHIDROSIS [None]
  - HEPATITIS [None]
  - BLOOD IMMUNOGLOBULIN G INCREASED [None]
  - HEADACHE [None]
  - INFUSION RELATED REACTION [None]
